FAERS Safety Report 4890701-3 (Version None)
Quarter: 2006Q1

REPORT INFORMATION
  Report Type: 
  Country: None (occurrence: None)
  Receive Date: 20060125
  Receipt Date: 20030409
  Transmission Date: 20060701
  Serious: Yes (Other)
  Sender: FDA-Public Use
  Company Number: US-BRISTOL-MYERS SQUIBB COMPANY-12242459

PATIENT
  Age: 30 Year
  Sex: Male

DRUGS (6)
  1. STADOL [Suspect]
     Route: 045
     Dates: start: 19960722, end: 19970923
  2. DIAZEPAM [Concomitant]
  3. HYDROCODONE + ACETAMINOPHEN [Concomitant]
  4. PHENERGAN [Concomitant]
  5. NITROGLYCERIN [Concomitant]
  6. RANITIDINE [Concomitant]

REACTIONS (1)
  - DEPENDENCE [None]
